FAERS Safety Report 4687316-9 (Version None)
Quarter: 2005Q2

REPORT INFORMATION
  Report Type: 
  Country: None (occurrence: None)
  Receive Date: 20050608
  Receipt Date: 20050526
  Transmission Date: 20051028
  Serious: Yes (Hospitalization, Other)
  Sender: FDA-Public Use
  Company Number: 2005080600

PATIENT
  Age: 73 Year
  Sex: Male
  Weight: 87.9978 kg

DRUGS (4)
  1. GEODON [Suspect]
     Indication: DEMENTIA
     Dosage: 180 MG (60 MG, 3 IN 1 D), ORAL
     Route: 048
     Dates: start: 20050101
  2. LEXAPRO [Concomitant]
  3. ARICEPT [Concomitant]
  4. ALL OTHER THERAPEUTIC PRODUCTS (ALL OTHER THERAPEUTIC PRODUCTS) [Concomitant]

REACTIONS (16)
  - ABNORMAL BEHAVIOUR [None]
  - ANOREXIA [None]
  - BACK PAIN [None]
  - CONDITION AGGRAVATED [None]
  - DIZZINESS [None]
  - FALL [None]
  - FEELING ABNORMAL [None]
  - HEART RATE DECREASED [None]
  - LOSS OF CONSCIOUSNESS [None]
  - MALAISE [None]
  - MOBILITY DECREASED [None]
  - MYOCARDIAL INFARCTION [None]
  - PARKINSON'S DISEASE [None]
  - PNEUMONIA [None]
  - PULMONARY THROMBOSIS [None]
  - SALIVARY HYPERSECRETION [None]
